FAERS Safety Report 16010710 (Version 1)
Quarter: 2019Q1

REPORT INFORMATION
  Report Type: Spontaneous
  Country: GB (occurrence: GB)
  Receive Date: 20190225
  Receipt Date: 20190225
  Transmission Date: 20190418
  Serious: Yes (Disabling, Other)
  Sender: FDA-Public Use
  Company Number: GB-TEVA-2019-GB-1014893

PATIENT
  Age: 42 Year
  Sex: Male
  Weight: 55 kg

DRUGS (8)
  1. ZOPICLONE [Concomitant]
     Active Substance: ZOPICLONE
     Dosage: AT NIGHT REDUCING DOSE AS SLEEP IMPROVES
     Dates: start: 20180712
  2. FEXOFENADINE [Concomitant]
     Active Substance: FEXOFENADINE\FEXOFENADINE HYDROCHLORIDE
     Dosage: 1 DOSAGE FORMS DAILY;
     Dates: start: 20190129
  3. CLONAZEPAM. [Concomitant]
     Active Substance: CLONAZEPAM
     Dosage: 4 DOSAGE FORMS DAILY;
     Dates: start: 20180712
  4. PROPRANOLOL [Concomitant]
     Active Substance: PROPRANOLOL HYDROCHLORIDE
     Dosage: IF YOU ARE FEELING PANICKY, MAX
     Dates: start: 20180712
  5. LEVETIRACETAM. [Concomitant]
     Active Substance: LEVETIRACETAM
     Dosage: 2 DOSAGE FORMS DAILY;
     Dates: start: 20180712
  6. NAPROXEN. [Suspect]
     Active Substance: NAPROXEN
     Dosage: 500 MILLIGRAM DAILY; WITH FOOD
     Dates: start: 20190118
  7. EPISTATUS [Concomitant]
     Dosage: AFTER 3 MINUTES OF FITTING REPEATED
     Dates: start: 20170907
  8. LAMOTRIGINE. [Concomitant]
     Active Substance: LAMOTRIGINE
     Dosage: 7 DOSAGE FORMS DAILY;
     Dates: start: 20180712

REACTIONS (2)
  - Rash [Recovering/Resolving]
  - Swelling [Recovering/Resolving]

NARRATIVE: CASE EVENT DATE: 20190129
